FAERS Safety Report 14324712 (Version 1)
Quarter: 2017Q4

REPORT INFORMATION
  Report Type: Spontaneous
  Country: US (occurrence: US)
  Receive Date: 20171226
  Receipt Date: 20171226
  Transmission Date: 20180321
  Serious: Yes (Life-Threatening, Hospitalization, Disabling, Other)
  Sender: FDA-Public Use
  Company Number: None

PATIENT
  Age: 55 Year
  Sex: Female
  Weight: 69.85 kg

DRUGS (8)
  1. VENLAFAXINE HYDROCHLORIDE HCL ER [Concomitant]
     Active Substance: VENLAFAXINE HYDROCHLORIDE
  2. RISPERIDONE TAB 1MG [Suspect]
     Active Substance: RISPERIDONE
     Indication: BIPOLAR DISORDER
     Dosage: DOSE - 2 TABS 1MG 1/2 TAB DAILY?FREQUENCY - NIGHTLY
     Route: 048
     Dates: start: 1987, end: 2017
  3. LITHIUM. [Concomitant]
     Active Substance: LITHIUM
  4. TEMAZEPAM. [Concomitant]
     Active Substance: TEMAZEPAM
  5. WELLBUTRIN [Concomitant]
     Active Substance: BUPROPION HYDROCHLORIDE
  6. DEPAKOTE [Concomitant]
     Active Substance: DIVALPROEX SODIUM
  7. CLONAZEPAM TAB 1MG [Suspect]
     Active Substance: CLONAZEPAM
     Indication: BIPOLAR DISORDER
     Dosage: DOSE - 2 TABS 1MG - PO - NIGHTLY
     Route: 048
     Dates: start: 1987, end: 2017
  8. PAXIL [Concomitant]
     Active Substance: PAROXETINE HYDROCHLORIDE

REACTIONS (28)
  - Myalgia [None]
  - Somnolence [None]
  - Vision blurred [None]
  - Gastrointestinal disorder [None]
  - Arthralgia [None]
  - Feeling abnormal [None]
  - Injury [None]
  - Asthenia [None]
  - Paranoia [None]
  - Rectal haemorrhage [None]
  - Post-traumatic stress disorder [None]
  - Genital discomfort [None]
  - Mood swings [None]
  - Depressed level of consciousness [None]
  - Disturbance in attention [None]
  - Fear [None]
  - Abnormal dreams [None]
  - Drug dependence [None]
  - Back pain [None]
  - Fatigue [None]
  - Musculoskeletal pain [None]
  - Sluggishness [None]
  - Suicidal ideation [None]
  - Anger [None]
  - Insomnia [None]
  - Depression [None]
  - Weight increased [None]
  - Constipation [None]

NARRATIVE: CASE EVENT DATE: 19871001
